FAERS Safety Report 6210212-2 (Version None)
Quarter: 2009Q2

REPORT INFORMATION
  Report Type: 
  Country: None (occurrence: None)
  Receive Date: 20090601
  Receipt Date: 20090527
  Transmission Date: 20091009
  Serious: Yes (Hospitalization, Other)
  Sender: FDA-Public Use
  Company Number: US-AMGEN-US326957

PATIENT
  Sex: Female

DRUGS (17)
  1. NPLATE [Suspect]
     Indication: IDIOPATHIC THROMBOCYTOPENIC PURPURA
     Route: 058
     Dates: start: 20081112, end: 20081222
  2. PLAQUENIL [Concomitant]
  3. APAP TAB [Concomitant]
  4. PROMETHAZINE [Concomitant]
  5. CETUXIMAB [Concomitant]
  6. PREDNISONE [Concomitant]
  7. NIFEDIPINE [Concomitant]
  8. CITALOPRAM HYDROBROMIDE [Concomitant]
  9. LEXAPRO [Concomitant]
     Route: 065
  10. LISINOPRIL [Concomitant]
     Route: 065
  11. COUMADIN [Concomitant]
     Route: 065
  12. HYDRALAZINE HCL [Concomitant]
     Route: 065
  13. ABILIFY [Concomitant]
     Route: 065
  14. COREG [Concomitant]
     Route: 065
  15. LUPRON [Concomitant]
     Route: 065
  16. IMMUNOGLOBULINS [Concomitant]
     Route: 042
  17. BACTRIM [Concomitant]
     Route: 065

REACTIONS (6)
  - EMBOLISM [None]
  - RENAL FAILURE ACUTE [None]
  - ROAD TRAFFIC ACCIDENT [None]
  - THERAPEUTIC RESPONSE DECREASED [None]
  - THROMBOCYTOPENIA [None]
  - VASCULITIS [None]
